FAERS Safety Report 11741925 (Version 1)
Quarter: 2015Q4

REPORT INFORMATION
  Report Type: Spontaneous
  Country: US (occurrence: US)
  Receive Date: 20151116
  Receipt Date: 20151116
  Transmission Date: 20160304
  Serious: Yes (Other)
  Sender: FDA-Public Use
  Company Number: US-BEH-2015055628

PATIENT
  Sex: Female
  Weight: 49.6 kg

DRUGS (28)
  1. VANOS CREAM [Concomitant]
  2. SKELAXIN [Concomitant]
     Active Substance: METAXALONE
  3. DIPHENHYDRAMINE. [Concomitant]
     Active Substance: DIPHENHYDRAMINE
  4. PROGESTERONE. [Concomitant]
     Active Substance: PROGESTERONE
  5. VITAMIN D [Concomitant]
     Active Substance: CHOLECALCIFEROL
  6. CELEBREX [Concomitant]
     Active Substance: CELECOXIB
  7. ZOFRAN [Concomitant]
     Active Substance: ONDANSETRON HYDROCHLORIDE
  8. ASTEPRO [Concomitant]
     Active Substance: AZELASTINE HYDROCHLORIDE
  9. PATADAY [Concomitant]
     Active Substance: OLOPATADINE HYDROCHLORIDE
  10. HIZENTRA [Suspect]
     Active Substance: HUMAN IMMUNOGLOBULIN G
     Indication: IMMUNODEFICIENCY COMMON VARIABLE
     Route: 058
  11. PREDNISONE. [Concomitant]
     Active Substance: PREDNISONE
  12. ULTRAM [Concomitant]
     Active Substance: TRAMADOL HYDROCHLORIDE
  13. DIPHENOXYLATE-ATROPINE [Concomitant]
  14. LEVOTHYROXINE. [Concomitant]
     Active Substance: LEVOTHYROXINE
  15. PREMPRO [Concomitant]
     Active Substance: ESTROGENS, CONJUGATED\MEDROXYPROGESTERONE ACETATE
  16. SIMVASTATIN. [Concomitant]
     Active Substance: SIMVASTATIN
  17. LIDOCAINE. [Concomitant]
     Active Substance: LIDOCAINE
  18. CREON [Concomitant]
     Active Substance: PANCRELIPASE AMYLASE\PANCRELIPASE LIPASE\PANCRELIPASE PROTEASE
  19. SYMBICORT [Concomitant]
     Active Substance: BUDESONIDE\FORMOTEROL FUMARATE DIHYDRATE
  20. LIDOCAINE/PRILOCAINE [Concomitant]
  21. LYRICA [Concomitant]
     Active Substance: PREGABALIN
  22. KETOCONAZOLE CREAM [Concomitant]
     Active Substance: KETOCONAZOLE
  23. HYDROXYZINE [Concomitant]
     Active Substance: HYDROXYZINE\HYDROXYZINE HYDROCHLORIDE
  24. EPIPEN [Concomitant]
     Active Substance: EPINEPHRINE
  25. ESTRACE [Concomitant]
     Active Substance: ESTRADIOL
  26. BUDESONIDE. [Concomitant]
     Active Substance: BUDESONIDE
  27. LEVALBUTEROL. [Concomitant]
     Active Substance: LEVALBUTEROL
  28. VOLTAREN [Concomitant]
     Active Substance: DICLOFENAC SODIUM

REACTIONS (1)
  - Escherichia infection [Unknown]
